FAERS Safety Report 16912855 (Version 1)
Quarter: 2019Q4

REPORT INFORMATION
  Report Type: Report from Study
  Country: CH (occurrence: CH)
  Receive Date: 20191014
  Receipt Date: 20191014
  Transmission Date: 20200122
  Serious: Yes (Other)
  Sender: FDA-Public Use
  Company Number: CH-TEVA-2019-CH-1121773

PATIENT
  Age: 64 Year
  Sex: Female

DRUGS (3)
  1. DENOSUMAB [Suspect]
     Active Substance: DENOSUMAB
     Indication: MALIGNANT MELANOMA
     Dosage: 120MG PER MONTH FOR THE LAST 3 YEARS
     Route: 058
  2. AMOXICILLIN. [Suspect]
     Active Substance: AMOXICILLIN
     Indication: OSTEONECROSIS OF JAW
     Route: 065
  3. RAMIPRIL. [Concomitant]
     Active Substance: RAMIPRIL
     Indication: HYPERTENSION
     Route: 065

REACTIONS (3)
  - Osteonecrosis of jaw [Not Recovered/Not Resolved]
  - Nausea [Unknown]
  - Abdominal pain upper [Unknown]
